FAERS Safety Report 5711459-1 (Version None)
Quarter: 2008Q2

REPORT INFORMATION
  Report Type: 
  Country: None (occurrence: None)
  Receive Date: 20080421
  Receipt Date: 20080409
  Transmission Date: 20081010
  Serious: Yes (Life-Threatening, Hospitalization)
  Sender: FDA-Public Use
  Company Number: US-MERCK-0804USA03536

PATIENT
  Age: 5 Week
  Sex: Male

DRUGS (1)
  1. AQUAMEPHYTON [Suspect]
     Route: 048

REACTIONS (2)
  - HAEMORRHAGIC DISEASE OF NEWBORN [None]
  - VITAMIN K DECREASED [None]
